FAERS Safety Report 6132254-8 (Version None)
Quarter: 2009Q1

REPORT INFORMATION
  Report Type: 
  Country: None (occurrence: None)
  Receive Date: 20090325
  Receipt Date: 20090310
  Transmission Date: 20090719
  Serious: Yes (Death)
  Sender: FDA-Public Use
  Company Number: US-PFIZER INC-2008003591

PATIENT
  Age: 20 Year
  Sex: Male

DRUGS (7)
  1. PREGABALIN [Suspect]
  2. IBUPROFEN [Suspect]
  3. OXYCODONE HCL [Suspect]
  4. CARISOPRODOL [Suspect]
  5. HYDROCODONE BITARTRATE [Suspect]
  6. WARFARIN SODIUM [Suspect]
  7. DIPHENHYDRAMINE [Suspect]

REACTIONS (3)
  - CARDIAC ARREST [None]
  - DEATH [None]
  - RESPIRATORY ARREST [None]
